FAERS Safety Report 19310873 (Version 1)
Quarter: 2021Q2

REPORT INFORMATION
  Report Type: Spontaneous
  Country: US (occurrence: BR)
  Receive Date: 20210526
  Receipt Date: 20210526
  Transmission Date: 20210717
  Serious: Yes (Hospitalization)
  Sender: FDA-Public Use
  Company Number: BR-BIOMARINAP-BR-2021-136684

PATIENT
  Age: 7 Year
  Sex: Male
  Weight: 18 kg

DRUGS (1)
  1. ALDURAZYME [Suspect]
     Active Substance: LARONIDASE
     Indication: MUCOPOLYSACCHARIDOSIS
     Dosage: 2 DOSAGE FORM, Q15D
     Route: 041
     Dates: start: 20180804

REACTIONS (3)
  - Cardiac disorder [Recovering/Resolving]
  - Product dose omission issue [Unknown]
  - Fatigue [Recovering/Resolving]

NARRATIVE: CASE EVENT DATE: 20210505
